FAERS Safety Report 13093740 (Version 1)
Quarter: 2017Q1

REPORT INFORMATION
  Report Type: Spontaneous
  Country: US (occurrence: US)
  Receive Date: 20170105
  Receipt Date: 20170105
  Transmission Date: 20170428
  Serious: Yes (Death)
  Sender: FDA-Public Use
  Company Number: None

PATIENT
  Age: 75 Year
  Sex: Female

DRUGS (6)
  1. FUROSEMIDE. [Concomitant]
     Active Substance: FUROSEMIDE
  2. AMLODIPINE [Concomitant]
     Active Substance: AMLODIPINE BESYLATE
  3. METOPROLOL TARTRATE. [Concomitant]
     Active Substance: METOPROLOL TARTRATE
  4. PROMACTA [Suspect]
     Active Substance: ELTROMBOPAG OLAMINE
     Indication: APLASTIC ANAEMIA
     Route: 048
     Dates: start: 20161214, end: 20170102
  5. CALCIUM CARBONATE-VIT D3 [Concomitant]
  6. DAPSONE. [Concomitant]
     Active Substance: DAPSONE

REACTIONS (3)
  - Anaemia [None]
  - Thrombocytopenia [None]
  - Sepsis [None]

NARRATIVE: CASE EVENT DATE: 20170102
